FAERS Safety Report 10757067 (Version 1)
Quarter: 2015Q1

REPORT INFORMATION
  Report Type: Spontaneous
  Country: US (occurrence: US)
  Receive Date: 20150203
  Receipt Date: 20150203
  Transmission Date: 20150721
  Serious: No
  Sender: FDA-Public Use
  Company Number: US-BRISTOL-MYERS SQUIBB COMPANY-BMS-2015-002550

PATIENT
  Sex: Male

DRUGS (1)
  1. COUMADIN [Suspect]
     Active Substance: WARFARIN SODIUM
     Indication: THROMBOSIS
     Dosage: 5 MG, QD (SPLITS THE 10 MG TABLETS)
     Route: 048
     Dates: start: 2010

REACTIONS (3)
  - Rash generalised [Recovered/Resolved]
  - Wrong technique in drug usage process [Unknown]
  - Tooth disorder [Unknown]
